FAERS Safety Report 8138559-3 (Version None)
Quarter: 2012Q1

REPORT INFORMATION
  Report Type: 
  Country: None (occurrence: None)
  Receive Date: 20120213
  Receipt Date: 20120125
  Transmission Date: 20120608
  Serious: Yes (Other)
  Sender: FDA-Public Use
  Company Number: 2012000003

PATIENT
  Age: 67 Year
  Sex: Male

DRUGS (3)
  1. ACEON [Suspect]
     Indication: HYPERTENSION
     Dosage: 5 MG, QD, ORAL; 5 MG, QD, ORAL; 5 MG, QD, ORAL
     Route: 048
     Dates: start: 20050101, end: 20120123
  2. ACEON [Suspect]
     Indication: HYPERTENSION
     Dosage: 5 MG, QD, ORAL; 5 MG, QD, ORAL; 5 MG, QD, ORAL
     Route: 048
     Dates: start: 20120127
  3. ACEON [Suspect]
     Indication: HYPERTENSION
     Dosage: 5 MG, QD, ORAL; 5 MG, QD, ORAL; 5 MG, QD, ORAL
     Route: 048
     Dates: start: 20120124, end: 20120125

REACTIONS (4)
  - CONDITION AGGRAVATED [None]
  - HYPERTENSION [None]
  - PRODUCT QUALITY ISSUE [None]
  - PALPITATIONS [None]
